FAERS Safety Report 7299900-7 (Version None)
Quarter: 2011Q1

REPORT INFORMATION
  Report Type: 
  Country: None (occurrence: None)
  Receive Date: 20110217
  Receipt Date: 20110214
  Transmission Date: 20110831
  Serious: Yes (Other)
  Sender: FDA-Public Use
  Company Number: TH-ROXANE LABORATORIES, INC.-2011-RO-00181RO

PATIENT
  Age: 13 Year
  Sex: Male

DRUGS (4)
  1. DILTIAZEM [Suspect]
     Indication: HYPERTENSION
  2. MYCOPHENOLATE MOFETIL [Suspect]
     Indication: IMMUNOSUPPRESSION
  3. PREDNISOLONE [Suspect]
     Indication: IMMUNOSUPPRESSION
  4. CYCLOSPORINE [Suspect]
     Indication: IMMUNOSUPPRESSION

REACTIONS (1)
  - LYMPHOCELE [None]
